FAERS Safety Report 19141148 (Version 2)
Quarter: 2021Q2

REPORT INFORMATION
  Report Type: Report from Study
  Country: CO (occurrence: CO)
  Receive Date: 20210415
  Receipt Date: 20210419
  Transmission Date: 20210717
  Serious: No
  Sender: FDA-Public Use
  Company Number: NVSC2021CO076265

PATIENT
  Sex: Female
  Weight: 55 kg

DRUGS (9)
  1. BISACODYL. [Concomitant]
     Active Substance: BISACODYL
     Indication: CONSTIPATION
     Dosage: UNK, QD (SINCE A YEAR AGO)
     Route: 048
  2. ONDANSETRON [Suspect]
     Active Substance: ONDANSETRON
     Indication: PRODUCT USED FOR UNKNOWN INDICATION
     Dosage: UNK (MORE THAN 2 MONTHS)
     Route: 065
  3. KISQALI [Suspect]
     Active Substance: RIBOCICLIB
     Indication: BREAST CANCER METASTATIC
     Dosage: UNK
     Route: 048
  4. ALUMINIUM HYD [Concomitant]
     Indication: GASTRITIS
     Dosage: 5 MG, QD (MORE THAN 3 MONTHS AGO)
     Route: 048
  5. KISQALI [Suspect]
     Active Substance: RIBOCICLIB
     Dosage: 600 MG, QD
     Route: 048
  6. FEMARA [Suspect]
     Active Substance: LETROZOLE
     Indication: BREAST CANCER
     Dosage: UNK
     Route: 048
  7. INSULIN [Concomitant]
     Active Substance: INSULIN NOS
     Indication: DIABETES MELLITUS
     Dosage: 5 DF, QD (MORE THAN 6 MONTHS AGO)
     Route: 058
  8. FEMARA [Suspect]
     Active Substance: LETROZOLE
     Dosage: 2.5 MG, QD
     Route: 065
  9. INSULIN GLARGINE [Concomitant]
     Active Substance: INSULIN GLARGINE
     Indication: DIABETES MELLITUS
     Dosage: 10 DF, QD
     Route: 058
     Dates: start: 2018

REACTIONS (13)
  - Anaemia [Unknown]
  - Stomatitis [Unknown]
  - Dysphagia [Unknown]
  - Blepharitis [Unknown]
  - Inflammation [Unknown]
  - Fatigue [Unknown]
  - Haemoglobin decreased [Unknown]
  - Dry mouth [Unknown]
  - Blood glucose abnormal [Unknown]
  - Pain [Unknown]
  - Vomiting [Not Recovered/Not Resolved]
  - Platelet count decreased [Unknown]
  - Pruritus [Unknown]
